FAERS Safety Report 5814301-3 (Version None)
Quarter: 2008Q3

REPORT INFORMATION
  Report Type: 
  Country: None (occurrence: None)
  Receive Date: 20080717
  Receipt Date: 20080709
  Transmission Date: 20090109
  Serious: Yes (Other)
  Sender: FDA-Public Use
  Company Number: US-ELI_LILLY_AND_COMPANY-US200806005439

PATIENT
  Sex: Female
  Weight: 136.5 kg

DRUGS (19)
  1. BYETTA [Suspect]
     Indication: TYPE 2 DIABETES MELLITUS
     Dosage: 5 UG, 2/D
     Route: 058
     Dates: start: 20050101, end: 20050101
  2. BYETTA [Suspect]
     Dosage: 10 UG, 3/D
     Route: 058
     Dates: start: 20060101, end: 20080501
  3. BYETTA [Suspect]
     Dosage: 10 UG, 2/D
     Route: 058
     Dates: start: 20050101, end: 20080601
  4. BYETTA [Suspect]
     Dosage: 10 UG, 2/D
     Route: 058
     Dates: start: 20080705
  5. LISINOPRIL [Concomitant]
     Indication: HYPERTENSION
     Dosage: UNK, DAILY (1/D)
  6. INDOMETHACIN [Concomitant]
     Dosage: 100 MG, 2/D
  7. NEBIVOLOL HCL [Concomitant]
     Dates: start: 20050101
  8. ARMOUR THYROID [Concomitant]
     Indication: PARATHYROIDECTOMY
     Dosage: 15 MG, DAILY (1/D)
     Dates: start: 20050101
  9. NEXIUM [Concomitant]
     Dosage: UNK, DAILY (1/D)
  10. ASPIRIN [Concomitant]
     Dosage: 81 MG, DAILY (1/D)
  11. SLOW-K [Concomitant]
     Indication: SUPPLEMENTATION THERAPY
     Dosage: UNK, 3/D
     Dates: start: 20050101
  12. MAGNESIUM SULFATE [Concomitant]
     Indication: MINERAL SUPPLEMENTATION
     Dosage: 400 MG, 2/D
     Dates: start: 20050101
  13. TRICOR [Concomitant]
     Dosage: UNK, DAILY (1/D)
  14. FERROUS SULFATE TAB [Concomitant]
     Dosage: UNK, DAILY (1/D)
  15. VITAMIN B-12 [Concomitant]
     Indication: VITAMIN B12 DEFICIENCY
     Dosage: UNK, 3/W
     Route: 051
  16. LACTOBACILLUS ACIDOPHILUS [Concomitant]
  17. GLUCOPHAGE [Concomitant]
     Indication: DIABETES MELLITUS
     Dates: end: 20080601
  18. SYMLIN [Concomitant]
     Indication: DIABETES MELLITUS
     Dosage: 60 UG, 3/D
     Dates: start: 20080701, end: 20080709
  19. HUMALOG [Concomitant]
     Indication: DIABETES MELLITUS
     Dates: start: 20040601, end: 20080705

REACTIONS (4)
  - ABDOMINAL PAIN UPPER [None]
  - BLOOD GLUCOSE INCREASED [None]
  - DRUG INEFFECTIVE [None]
  - PANCREATIC DISORDER [None]
